FAERS Safety Report 17254042 (Version 2)
Quarter: 2020Q2

REPORT INFORMATION
  Report Type: Spontaneous
  Country: DE (occurrence: DE)
  Receive Date: 20200109
  Receipt Date: 20200403
  Transmission Date: 20200713
  Serious: Yes (Other)
  Sender: FDA-Public Use
  Company Number: NVSC2020DE003579

PATIENT
  Sex: Male
  Weight: 76.6 kg

DRUGS (5)
  1. VEREGEN [Suspect]
     Active Substance: SINECATECHINS
     Indication: PRODUCT USED FOR UNKNOWN INDICATION
     Dosage: UNK
     Route: 065
  2. BICTEGRAVIR [Suspect]
     Active Substance: BICTEGRAVIR
     Indication: HIV INFECTION
     Dosage: 1 DF, QD
     Route: 048
     Dates: start: 20181019
  3. SILDENAFIL. [Concomitant]
     Active Substance: SILDENAFIL
     Indication: HIV INFECTION
     Dosage: UNK
     Route: 065
     Dates: start: 20180801
  4. VERRUMAL [Concomitant]
     Indication: PRODUCT USED FOR UNKNOWN INDICATION
     Dosage: UNK
     Route: 065
     Dates: start: 20190704
  5. AMOXICILLIN. [Suspect]
     Active Substance: AMOXICILLIN
     Indication: BRONCHITIS
     Dosage: UNK
     Route: 048
     Dates: start: 20191004, end: 20191010

REACTIONS (3)
  - Bronchitis [Recovered/Resolved]
  - Gonorrhoea [Recovered/Resolved]
  - Viral acanthoma [Recovered/Resolved]

NARRATIVE: CASE EVENT DATE: 20191004
